FAERS Safety Report 9311062 (Version 1)
Quarter: 2013Q2

REPORT INFORMATION
  Report Type: Spontaneous
  Country: US (occurrence: None)
  Receive Date: 20130523
  Receipt Date: 20130523
  Transmission Date: 20140414
  Serious: Yes (Life-Threatening)
  Sender: FDA-Public Use
  Company Number: None

PATIENT
  Age: 20 Year
  Sex: Female
  Weight: 95.26 kg

DRUGS (1)
  1. ETOPOSIDE [Suspect]
     Indication: LYMPHOMA
     Dates: start: 20130522, end: 20130522

REACTIONS (6)
  - Infusion related reaction [None]
  - Dyspnoea [None]
  - Chest discomfort [None]
  - Flushing [None]
  - Nausea [None]
  - Product formulation issue [None]
